FAERS Safety Report 24228174 (Version 2)
Quarter: 2024Q4

REPORT INFORMATION
  Report Type: Spontaneous
  Country: US (occurrence: US)
  Receive Date: 20240820
  Receipt Date: 20241018
  Transmission Date: 20250114
  Serious: Yes (Death, Other)
  Sender: PFIZER
  Company Number: US-PFIZER INC-202400239448

PATIENT
  Age: 85 Year
  Sex: Male
  Weight: 82.54 kg

DRUGS (11)
  1. VYNDAMAX [Suspect]
     Active Substance: TAFAMIDIS
     Indication: Cardiac amyloidosis
     Dosage: 61MG ONCE A DAY
     Route: 048
     Dates: end: 2024
  2. ATORVASTATIN [Concomitant]
     Active Substance: ATORVASTATIN
     Indication: Blood cholesterol abnormal
     Dosage: 10 MG BEFORE BED
  3. ELIQUIS [Concomitant]
     Active Substance: APIXABAN
     Indication: Atrial fibrillation
     Dosage: 2.5 MG, 2X/DAY
  4. MESALAMINE [Concomitant]
     Active Substance: MESALAMINE
     Dosage: 2 IN AM, 2 AT NOON, 2 IN THE EVENING
  5. CHOLECALCIFEROL [Concomitant]
     Active Substance: CHOLECALCIFEROL
     Dosage: 2 IN AM, 2 AT NOON, 2 IN THE EVENING
  6. CYANOCOBALAMIN [Concomitant]
     Active Substance: CYANOCOBALAMIN
     Dosage: 1000 UG, DAILY
  7. COLACE [Concomitant]
     Active Substance: DOCUSATE SODIUM
     Dosage: 1000 MG, 2X/DAY (ONE IN A.M, ONE IN P.M)
  8. HYDRALAZINE [Concomitant]
     Active Substance: HYDRALAZINE HYDROCHLORIDE
     Indication: Blood pressure increased
     Dosage: ONE TABLET 3X DAILY AS NEEDED
  9. PANTOPRAZOLE [Concomitant]
     Active Substance: PANTOPRAZOLE
     Dosage: 40 MG, 2X/DAY (ONE IN THE A.M AND ONE IN THE P.M)
  10. POTASSIUM CHLORIDE [Concomitant]
     Active Substance: POTASSIUM CHLORIDE
     Dosage: 10MCG TABLET, 2 IN THE A.M AND 2 IN THE P.M
  11. TORSEMIDE [Concomitant]
     Active Substance: TORSEMIDE
     Dosage: 10MG TABLET, 3 IN THE A.M AND 3 IN THE P.M

REACTIONS (3)
  - Cardiac arrest [Fatal]
  - Myocardial infarction [Fatal]
  - Acute respiratory failure [Fatal]
